FAERS Safety Report 9984717 (Version 1)
Quarter: 2014Q1

REPORT INFORMATION
  Report Type: Report from Study
  Country: US (occurrence: US)
  Receive Date: 20140304
  Receipt Date: 20140304
  Transmission Date: 20141002
  Serious: No
  Sender: FDA-Public Use
  Company Number: US-ABBVIE-13P-163-1078979-00

PATIENT
  Age: 41 Year
  Sex: Male

DRUGS (5)
  1. HUMIRA [Suspect]
     Indication: PSORIASIS
     Route: 058
     Dates: start: 20130307
  2. HYDROCODONE [Concomitant]
     Indication: PAIN
     Dosage: 10/325 MG AS NEEDED
  3. PRILOSEC [Concomitant]
     Indication: DYSPEPSIA
  4. PRILOSEC [Concomitant]
     Indication: GASTROOESOPHAGEAL REFLUX DISEASE
  5. IBUPROFEN [Concomitant]
     Indication: PAIN
     Dosage: AS NEEDED

REACTIONS (2)
  - Dizziness [Not Recovered/Not Resolved]
  - Local swelling [Not Recovered/Not Resolved]
